FAERS Safety Report 25771594 (Version 1)
Quarter: 2025Q3

REPORT INFORMATION
  Report Type: Spontaneous
  Country: US (occurrence: US)
  Receive Date: 20250908
  Receipt Date: 20250908
  Transmission Date: 20251021
  Serious: No
  Sender: DOMPE FARMACEUTICI
  Company Number: US-FARMAPROD-202505-1477

PATIENT
  Sex: Female
  Weight: 65.68 kg

DRUGS (11)
  1. OXERVATE [Suspect]
     Active Substance: CENEGERMIN-BKBJ
     Indication: Neurotrophic keratopathy
     Route: 047
     Dates: start: 20250417
  2. LASIX [Concomitant]
     Active Substance: FUROSEMIDE
  3. EPINEPHRINE [Concomitant]
     Active Substance: EPINEPHRINE
  4. PEPCID [Concomitant]
     Active Substance: FAMOTIDINE
  5. ALLEGRA ALLERGY [Concomitant]
     Active Substance: FEXOFENADINE HYDROCHLORIDE
  6. CLARITIN [Concomitant]
     Active Substance: LORATADINE
  7. ELIQUIS [Concomitant]
     Active Substance: APIXABAN
  8. SPIRONOLACTONE [Concomitant]
     Active Substance: SPIRONOLACTONE
  9. CHLORTHALIDONE [Concomitant]
     Active Substance: CHLORTHALIDONE
  10. BYSTOLIC [Concomitant]
     Active Substance: NEBIVOLOL HYDROCHLORIDE
  11. XOLAIR [Concomitant]
     Active Substance: OMALIZUMAB

REACTIONS (1)
  - Eyelid pain [Unknown]
